FAERS Safety Report 24593858 (Version 2)
Quarter: 2025Q1

REPORT INFORMATION
  Report Type: Spontaneous
  Country: AT (occurrence: AT)
  Receive Date: 20241108
  Receipt Date: 20250110
  Transmission Date: 20250409
  Serious: Yes (Other)
  Sender: TEVA
  Company Number: AT-TEVA-VS-3262025

PATIENT
  Age: 50 Year
  Sex: Female

DRUGS (8)
  1. PRAMIPEXOLE [Suspect]
     Active Substance: PRAMIPEXOLE
     Indication: Parkinson^s disease
     Route: 048
     Dates: start: 2021, end: 2024
  2. PRAMIPEXOLE [Suspect]
     Active Substance: PRAMIPEXOLE
     Indication: Parkinson^s disease
     Route: 065
     Dates: start: 2019, end: 2020
  3. PRAMIPEXOLE [Suspect]
     Active Substance: PRAMIPEXOLE
     Indication: Parkinson^s disease
     Route: 065
     Dates: start: 2020, end: 2021
  4. CARBIDOPA\ENTACAPONE\LEVODOPA [Suspect]
     Active Substance: CARBIDOPA\ENTACAPONE\LEVODOPA
     Indication: Parkinson^s disease
     Route: 048
     Dates: start: 2021, end: 2023
  5. CARBIDOPA\ENTACAPONE\LEVODOPA [Suspect]
     Active Substance: CARBIDOPA\ENTACAPONE\LEVODOPA
     Indication: Parkinson^s disease
     Dosage: CARBIDOPA 25MG /ENTACAPON 200 MG/LEVODOPA 150 MG
     Route: 048
  6. RASAGILINE [Suspect]
     Active Substance: RASAGILINE
     Indication: Parkinson^s disease
     Dosage: RASAGILIN 1MG AT NIGHT
     Route: 048
     Dates: start: 2021, end: 2023
  7. OPICAPONE [Concomitant]
     Active Substance: OPICAPONE
     Indication: Parkinson^s disease
     Dosage: ONCE IN THE EVENING
     Route: 065
     Dates: start: 2023
  8. APOMORPHINE [Concomitant]
     Active Substance: APOMORPHINE
     Indication: Seizure
     Route: 058
     Dates: start: 2023

REACTIONS (2)
  - Substance-induced psychotic disorder [Unknown]
  - Somnolence [Unknown]
